FAERS Safety Report 17473439 (Version 2)
Quarter: 2020Q4

REPORT INFORMATION
  Report Type: Report from Study
  Country: IE (occurrence: IE)
  Receive Date: 20200228
  Receipt Date: 20201030
  Transmission Date: 20210113
  Serious: Yes (Other)
  Sender: FDA-Public Use
  Company Number: IE-JNJFOC-20190135596

PATIENT
  Age: 54 Year
  Sex: Male
  Weight: 106 kg

DRUGS (6)
  1. JARDIANCE [Concomitant]
     Active Substance: EMPAGLIFLOZIN
     Route: 065
  2. VENLAFAXINE HYDROCHLORIDE. [Concomitant]
     Active Substance: VENLAFAXINE HYDROCHLORIDE
     Route: 065
  3. PANTOPRAZOLE [Concomitant]
     Active Substance: PANTOPRAZOLE
     Route: 065
  4. STELARA [Suspect]
     Active Substance: USTEKINUMAB
     Indication: PSORIASIS
     Route: 058
     Dates: start: 20180206
  5. TRAJENTA [Concomitant]
     Active Substance: LINAGLIPTIN
     Route: 065
  6. METOFORMIN [Concomitant]
     Active Substance: METFORMIN HYDROCHLORIDE
     Dosage: T.D.S
     Route: 065

REACTIONS (5)
  - Tongue ulceration [Unknown]
  - Oral herpes [Unknown]
  - Psoriasis [Unknown]
  - Knee arthroplasty [Unknown]
  - Fatigue [Unknown]
